FAERS Safety Report 24613427 (Version 1)
Quarter: 2024Q4

REPORT INFORMATION
  Report Type: Spontaneous
  Country: IT (occurrence: IT)
  Receive Date: 20241113
  Receipt Date: 20241113
  Transmission Date: 20250114
  Serious: Yes (Death)
  Sender: MYLAN
  Company Number: IT-MYLANLABS-2024M1097518

PATIENT
  Age: 70 Year
  Sex: Male

DRUGS (2)
  1. ARIXTRA [Suspect]
     Active Substance: FONDAPARINUX SODIUM
     Indication: Thrombosis prophylaxis
     Dosage: UNK, QD (ONCE DAILY FOR 4 DAYS)
     Route: 058
  2. ARIXTRA [Suspect]
     Active Substance: FONDAPARINUX SODIUM
     Indication: Product used for unknown indication
     Dosage: UNK
     Route: 065
     Dates: start: 20230916

REACTIONS (2)
  - Haematoma muscle [Fatal]
  - Shock [Fatal]

NARRATIVE: CASE EVENT DATE: 20230921
